FAERS Safety Report 10620373 (Version 2)
Quarter: 2014Q4

REPORT INFORMATION
  Report Type: Report from Study
  Country: AU (occurrence: AU)
  Receive Date: 20141202
  Receipt Date: 20141202
  Transmission Date: 20150529
  Serious: Yes (Hospitalization)
  Sender: FDA-Public Use
  Company Number: AU-BAYER-2014-171930

PATIENT
  Age: 82 Year
  Sex: Female

DRUGS (2)
  1. STIVARGA [Suspect]
     Active Substance: REGORAFENIB
     Indication: COLORECTAL CANCER METASTATIC
     Dosage: DAILY DOSE OF 160 MG
     Route: 048
     Dates: start: 20141119, end: 20141125
  2. STIVARGA [Suspect]
     Active Substance: REGORAFENIB
     Indication: COLORECTAL CANCER METASTATIC
     Dosage: DAILY DOSE 80 MG
     Route: 048
     Dates: start: 20141129

REACTIONS (7)
  - Constipation [Not Recovered/Not Resolved]
  - Nocturia [Recovered/Resolved]
  - Dysphonia [Not Recovered/Not Resolved]
  - Asthenia [Recovered/Resolved with Sequelae]
  - Fatigue [Recovered/Resolved with Sequelae]
  - Insomnia [Recovered/Resolved with Sequelae]
  - Abdominal distension [Recovered/Resolved]

NARRATIVE: CASE EVENT DATE: 20141119
